FAERS Safety Report 25460919 (Version 1)
Quarter: 2025Q2

REPORT INFORMATION
  Report Type: Spontaneous
  Country: US (occurrence: None)
  Receive Date: 20250618
  Receipt Date: 20250618
  Transmission Date: 20250717
  Serious: Yes (Other)
  Sender: FDA-CTU
  Company Number: None

PATIENT
  Age: 65 Year
  Sex: Female
  Weight: 72.45 kg

DRUGS (6)
  1. CEFUROXIME [Suspect]
     Active Substance: CEFUROXIME
     Indication: Urinary tract infection
     Dosage: OTHER QUANTITY : 1 TABLET(S);?FREQUENCY : TWICE A DAY;?
     Dates: start: 20250617, end: 20250618
  2. VITAMINS [Concomitant]
     Active Substance: VITAMINS
  3. COLLAGEN [Concomitant]
     Active Substance: COLLAGEN
  4. FISH OIL [Concomitant]
     Active Substance: FISH OIL
  5. FLAXDEED OIL [Concomitant]
  6. VITAMINS [Concomitant]
     Active Substance: VITAMINS

REACTIONS (2)
  - Eye swelling [None]
  - Abdominal pain [None]

NARRATIVE: CASE EVENT DATE: 20250618
